FAERS Safety Report 17553426 (Version 1)
Quarter: 2020Q1

REPORT INFORMATION
  Report Type: Spontaneous
  Country: GB (occurrence: GB)
  Receive Date: 20200317
  Receipt Date: 20200317
  Transmission Date: 20200409
  Serious: Yes (Disabling, Other)
  Sender: FDA-Public Use
  Company Number: GB-JNJFOC-20200308329

PATIENT
  Age: 40 Year
  Sex: Female
  Weight: 58.06 kg

DRUGS (2)
  1. DEPO-PROVERA [Concomitant]
     Active Substance: MEDROXYPROGESTERONE ACETATE
  2. TOPAMAX [Suspect]
     Active Substance: TOPIRAMATE
     Indication: HEADACHE
     Route: 048
     Dates: start: 2016

REACTIONS (2)
  - Malpositioned teeth [Not Recovered/Not Resolved]
  - Gingival bleeding [Unknown]

NARRATIVE: CASE EVENT DATE: 2017
